FAERS Safety Report 24986011 (Version 1)
Quarter: 2025Q1

REPORT INFORMATION
  Report Type: Spontaneous
  Country: CN (occurrence: CN)
  Receive Date: 20250219
  Receipt Date: 20250219
  Transmission Date: 20250409
  Serious: Yes (Death, Other)
  Sender: JOHNSON AND JOHNSON
  Company Number: CN-JNJFOC-20250230071

PATIENT
  Age: 54 Year
  Sex: Female

DRUGS (7)
  1. IBRUTINIB [Suspect]
     Active Substance: IBRUTINIB
     Indication: Diffuse large B-cell lymphoma
     Route: 048
     Dates: start: 20171229
  2. IBRUTINIB [Suspect]
     Active Substance: IBRUTINIB
     Indication: Central nervous system lymphoma
  3. RITUXIMAB [Concomitant]
     Active Substance: RITUXIMAB
  4. TEMOZOLOMIDE [Concomitant]
     Active Substance: TEMOZOLOMIDE
  5. ETOPOSIDE [Concomitant]
     Active Substance: ETOPOSIDE
  6. ADRIAMYCIN [Concomitant]
     Active Substance: DOXORUBICIN HYDROCHLORIDE
  7. DEXAMETHASONE [Concomitant]
     Active Substance: DEXAMETHASONE

REACTIONS (6)
  - Septic shock [Fatal]
  - Respiratory failure [Unknown]
  - Pneumonia viral [Recovering/Resolving]
  - Pneumonia [Unknown]
  - Product use in unapproved indication [Unknown]
  - Bacterial infection [Unknown]
